FAERS Safety Report 17713442 (Version 3)
Quarter: 2020Q2

REPORT INFORMATION
  Report Type: Spontaneous
  Country: IR (occurrence: IR)
  Receive Date: 20200427
  Receipt Date: 20200508
  Transmission Date: 20200714
  Serious: Yes (Hospitalization, Other)
  Sender: FDA-Public Use
  Company Number: IR-MYLANLABS-2020M1041224

PATIENT
  Age: 29 Year
  Sex: Female

DRUGS (2)
  1. METHOTREXATE MYLAN [Suspect]
     Active Substance: METHOTREXATE SODIUM
     Dosage: 80 MILLIGRAM, TOTAL
     Route: 030
  2. METHOTREXATE MYLAN [Suspect]
     Active Substance: METHOTREXATE SODIUM
     Indication: ECTOPIC PREGNANCY
     Dosage: 100 MG /10ML, ONE DOSE OF 80MG
     Route: 030

REACTIONS (11)
  - Pyrexia [Unknown]
  - Suspected product quality issue [Unknown]
  - Blood creatinine increased [Unknown]
  - Pharyngeal oedema [Unknown]
  - Petechiae [Unknown]
  - Off label use [Unknown]
  - Oropharyngeal pain [Unknown]
  - Cyanosis [Unknown]
  - Purpura [Unknown]
  - Pancytopenia [Unknown]
  - Maternal exposure during pregnancy [Unknown]
